FAERS Safety Report 16017482 (Version 2)
Quarter: 2019Q3

REPORT INFORMATION
  Report Type: Spontaneous
  Country: JP (occurrence: JP)
  Receive Date: 20190228
  Receipt Date: 20190705
  Transmission Date: 20191004
  Serious: Yes (Other)
  Sender: FDA-Public Use
  Company Number: JP-PFIZER INC-2019082825

PATIENT
  Age: 70 Year
  Sex: Male
  Weight: 58 kg

DRUGS (8)
  1. MEYLON [Concomitant]
     Active Substance: SODIUM BICARBONATE
     Dosage: 1A (20ML), SIX TIMES DAILY
     Route: 041
     Dates: start: 20190205, end: 20190207
  2. METHOTREXATE 200MG [Suspect]
     Active Substance: METHOTREXATE
     Indication: LYMPHOMA
     Dosage: 3200 MG, ONCE DAILY
     Route: 041
     Dates: start: 20190204, end: 20190204
  3. LEUCOVORIN CALCIUM FARMOS [CALCIUM FOLINATE] [Concomitant]
     Dosage: 17A, THREE TIMES DAILY
     Route: 041
     Dates: start: 20190214, end: 20190214
  4. MEYLON [Concomitant]
     Active Substance: SODIUM BICARBONATE
     Dosage: 1A, FOUR TIMES DAILY
     Route: 041
     Dates: start: 20190208, end: 20190214
  5. DIAMOX SEQUELS [Concomitant]
     Active Substance: ACETAZOLAMIDE
     Dosage: 250 MG, TWICE DAILY
     Route: 048
     Dates: start: 20190203, end: 20190215
  6. LEUCOVORIN CALCIUM FARMOS [CALCIUM FOLINATE] [Concomitant]
     Dosage: 17A, THREE TIMES DAILY
     Route: 041
     Dates: start: 20190205, end: 20190205
  7. LEUCOVORIN CALCIUM FARMOS [CALCIUM FOLINATE] [Concomitant]
     Dosage: 5A, FIVE TIMES DAILY
     Route: 041
     Dates: start: 20190205, end: 20190205
  8. LEUCOVORIN CALCIUM FARMOS [CALCIUM FOLINATE] [Concomitant]
     Dosage: 17A, FOUR TIMES DAILY
     Route: 041
     Dates: start: 20190206, end: 20190213

REACTIONS (2)
  - Blood creatinine increased [Recovering/Resolving]
  - Drug level increased [Recovered/Resolved]

NARRATIVE: CASE EVENT DATE: 201902
